FAERS Safety Report 7521241-0 (Version None)
Quarter: 2011Q2

REPORT INFORMATION
  Report Type: 
  Country: None (occurrence: None)
  Receive Date: 20110603
  Receipt Date: 20101214
  Transmission Date: 20111010
  Serious: Yes (Hospitalization)
  Sender: FDA-Public Use
  Company Number: JP-BAYER-201010773BYL

PATIENT
  Age: 73 Year
  Sex: Male
  Weight: 65 kg

DRUGS (5)
  1. NEXAVAR [Suspect]
     Indication: HEPATIC NEOPLASM MALIGNANT
     Dosage: 400 MG, BID
     Route: 048
     Dates: start: 20100201, end: 20100211
  2. OMEPRAZOLE [Concomitant]
     Dosage: DAILY DOSE 10 MG
     Route: 048
     Dates: start: 20091002
  3. MUCOSTA [Concomitant]
     Dosage: DAILY DOSE 100 MG
     Route: 048
  4. LOXONIN [Concomitant]
     Dosage: DAILY DOSE 60 MG
     Route: 048
  5. NEXAVAR [Suspect]
     Dosage: DAILY DOSE 400 MG
     Dates: start: 20100301, end: 20100414

REACTIONS (3)
  - ABNORMAL BEHAVIOUR [None]
  - HEPATIC ENCEPHALOPATHY [None]
  - MEMORY IMPAIRMENT [None]
